FAERS Safety Report 7824906-6 (Version None)
Quarter: 2011Q4

REPORT INFORMATION
  Report Type: 
  Country: None (occurrence: None)
  Receive Date: 20111019
  Receipt Date: 20110318
  Transmission Date: 20120403
  Serious: No
  Sender: FDA-Public Use
  Company Number: US-BRISTOL-MYERS SQUIBB COMPANY-15559370

PATIENT
  Age: 65 Year
  Sex: Male

DRUGS (4)
  1. VESICARE [Concomitant]
  2. AVALIDE [Suspect]
     Dosage: TABLET
  3. LIPITOR [Concomitant]
  4. OMEPRAZOLE [Concomitant]

REACTIONS (1)
  - BLOOD PRESSURE INCREASED [None]
